FAERS Safety Report 17044393 (Version 1)
Quarter: 2019Q4

REPORT INFORMATION
  Report Type: Spontaneous
  Country: IT (occurrence: IT)
  Receive Date: 20191118
  Receipt Date: 20191118
  Transmission Date: 20200122
  Serious: Yes (Other)
  Sender: FDA-Public Use
  Company Number: IT-BAUSCH-BL-2019-060089

PATIENT
  Age: 68 Year
  Sex: Female

DRUGS (1)
  1. IMIQUIMOD. [Suspect]
     Active Substance: IMIQUIMOD
     Indication: BASAL CELL CARCINOMA
     Dosage: APPLIED 5 DAYS A WEEK, SCHEDULED FOR 6 WEEKS
     Route: 061

REACTIONS (1)
  - Linear IgA disease [Recovering/Resolving]
